FAERS Safety Report 24938004 (Version 1)
Quarter: 2025Q1

REPORT INFORMATION
  Report Type: Spontaneous
  Country: IL (occurrence: IL)
  Receive Date: 20250206
  Receipt Date: 20250206
  Transmission Date: 20250409
  Serious: Yes (Other)
  Sender: AMGEN
  Company Number: IL-AMGEN-ISRSP2025022001

PATIENT

DRUGS (2)
  1. PROLIA [Suspect]
     Active Substance: DENOSUMAB
     Indication: Osteoporosis postmenopausal
     Dosage: 60 MILLIGRAM, Q6MO
     Route: 058
  2. ZOLEDRONIC ACID [Concomitant]
     Active Substance: ZOLEDRONIC ACID
     Indication: Osteoporosis postmenopausal
     Dosage: 5 MILLIGRAM, Q12MO
     Route: 040

REACTIONS (5)
  - Osteoporotic fracture [Unknown]
  - Spinal fracture [Unknown]
  - Hip fracture [Unknown]
  - Blood parathyroid hormone increased [Unknown]
  - Hypocalcaemia [Unknown]
